FAERS Safety Report 18932222 (Version 1)
Quarter: 2021Q1

REPORT INFORMATION
  Report Type: Spontaneous
  Country: US (occurrence: US)
  Receive Date: 20210224
  Receipt Date: 20210224
  Transmission Date: 20210420
  Serious: No
  Sender: FDA-Public Use
  Company Number: US-TEVA-2021-US-1882479

PATIENT
  Sex: Male

DRUGS (1)
  1. NIZATIDINE TEVA [Suspect]
     Active Substance: NIZATIDINE
     Route: 065

REACTIONS (4)
  - Headache [Unknown]
  - Intentional product use issue [Unknown]
  - Expired product administered [Unknown]
  - Gastrointestinal disorder [Unknown]
